FAERS Safety Report 14290207 (Version 1)
Quarter: 2017Q4

REPORT INFORMATION
  Report Type: Spontaneous
  Country: US (occurrence: None)
  Receive Date: 20171214
  Receipt Date: 20171214
  Transmission Date: 20180321
  Serious: Yes (Hospitalization)
  Sender: FDA-Public Use
  Company Number: None

PATIENT
  Age: 63 Year
  Sex: Female
  Weight: 54 kg

DRUGS (5)
  1. ANTHRACYCLINE [Concomitant]
     Active Substance: UNSPECIFIED INGREDIENT
  2. CARBOPLATIN. [Suspect]
     Active Substance: CARBOPLATIN
     Dosage: SEE SECTION 2
  3. PACLITAXEL. [Concomitant]
     Active Substance: PACLITAXEL
  4. TRASTUZUMAB. [Concomitant]
     Active Substance: TRASTUZUMAB
  5. PERTUZUMAB. [Concomitant]
     Active Substance: PERTUZUMAB

REACTIONS (2)
  - Vomiting [None]
  - Dizziness [None]

NARRATIVE: CASE EVENT DATE: 20171208
